FAERS Safety Report 17607863 (Version 2)
Quarter: 2020Q3

REPORT INFORMATION
  Report Type: Spontaneous
  Country: PT (occurrence: PT)
  Receive Date: 20200401
  Receipt Date: 20200926
  Transmission Date: 20201102
  Serious: Yes (Other)
  Sender: FDA-Public Use
  Company Number: PT-CELLTRION INC.-2020PT020915

PATIENT

DRUGS (3)
  1. INFLIXIMAB (UNKNOWN) [Suspect]
     Active Substance: INFLIXIMAB
     Indication: COLITIS ULCERATIVE
     Dosage: UNK
     Route: 065
  2. MESALAZINE [Suspect]
     Active Substance: MESALAMINE
     Indication: COLITIS ULCERATIVE
     Dosage: UNK
     Route: 065
  3. AZATHIOPRINE. [Suspect]
     Active Substance: AZATHIOPRINE
     Indication: COLITIS ULCERATIVE
     Dosage: UNK
     Route: 065

REACTIONS (8)
  - Drug specific antibody present [Unknown]
  - Diarrhoea haemorrhagic [Recovered/Resolved]
  - Inflammatory marker increased [Unknown]
  - Acute febrile neutrophilic dermatosis [Recovered/Resolved]
  - Skin mass [Recovered/Resolved]
  - Pyrexia [Recovered/Resolved]
  - Drug level decreased [Unknown]
  - Arthralgia [Recovered/Resolved]
